FAERS Safety Report 9834431 (Version 2)
Quarter: 2014Q1

REPORT INFORMATION
  Report Type: Spontaneous
  Country: BR (occurrence: BR)
  Receive Date: 20140122
  Receipt Date: 20140122
  Transmission Date: 20141002
  Serious: Yes (Death)
  Sender: FDA-Public Use
  Company Number: BR-SA-POMP-1001833

PATIENT
  Sex: Female
  Weight: 5 kg

DRUGS (5)
  1. MYOZYME [Suspect]
     Indication: GLYCOGEN STORAGE DISEASE TYPE II
     Dosage: 20 MG/KG, Q2W
     Route: 042
     Dates: start: 20110824, end: 20111005
  2. ANTIBIOTICS [Concomitant]
     Dosage: UNK UNK, UNK
  3. DIURETICS [Concomitant]
     Dosage: UNK UNK, UNK
     Route: 065
  4. CARDIOVASCULAR SYSTEM DRUGS [Concomitant]
  5. VITAMINS [Concomitant]
     Dosage: UNK UNK, UNK

REACTIONS (1)
  - Cardiac failure [Fatal]
